FAERS Safety Report 5727527-4 (Version None)
Quarter: 2008Q2

REPORT INFORMATION
  Report Type: 
  Country: None (occurrence: None)
  Receive Date: 20080429
  Receipt Date: 20080115
  Transmission Date: 20081010
  Serious: Yes (Other)
  Sender: FDA-Public Use
  Company Number: 2008-170598-NL

PATIENT
  Age: 21 Year
  Sex: Female

DRUGS (1)
  1. PUREGON [Suspect]

REACTIONS (1)
  - ECTOPIC PREGNANCY [None]
